FAERS Safety Report 10073212 (Version 1)
Quarter: 2014Q2

REPORT INFORMATION
  Report Type: Spontaneous
  Country: US (occurrence: US)
  Receive Date: 20140411
  Receipt Date: 20140411
  Transmission Date: 20141212
  Serious: Yes (Hospitalization)
  Sender: FDA-Public Use
  Company Number: US-PFIZER INC-2014102147

PATIENT
  Age: 69 Year
  Sex: Male
  Weight: 75 kg

DRUGS (2)
  1. RAPAMUNE [Suspect]
     Indication: GRAFT VERSUS HOST DISEASE
     Dosage: 1 MG, DAILY
     Route: 048
     Dates: end: 2014
  2. RAPAMUNE [Suspect]
     Indication: BONE MARROW TRANSPLANT

REACTIONS (4)
  - Pneumonia [Unknown]
  - Dehydration [Unknown]
  - Dysphagia [Unknown]
  - Off label use [Unknown]
